FAERS Safety Report 8145180-X (Version None)
Quarter: 2012Q1

REPORT INFORMATION
  Report Type: 
  Country: None (occurrence: None)
  Receive Date: 20120217
  Receipt Date: 20120215
  Transmission Date: 20120608
  Serious: Yes (Death)
  Sender: FDA-Public Use
  Company Number: PHHO2011CY11602

PATIENT
  Age: 39 Year
  Sex: Female

DRUGS (12)
  1. LEVOTHYROXINE SODIUM [Concomitant]
  2. TASIGNA [Suspect]
     Dosage: 400 MG, BID
     Route: 048
     Dates: start: 20110601
  3. TASIGNA [Suspect]
     Dosage: NO TREATMENT RECEIVED
     Dates: start: 20110427, end: 20110504
  4. PARACETAMOL [Concomitant]
  5. DURAGESIC-100 [Concomitant]
  6. BISACODYL [Concomitant]
  7. TASIGNA [Suspect]
     Dosage: NO TREATMENT RECEIVED
     Dates: start: 20110528, end: 20110531
  8. TASIGNA [Suspect]
     Indication: GASTROINTESTINAL STROMAL TUMOUR
     Dosage: 400 MG, BID
     Route: 048
     Dates: start: 20110217, end: 20110426
  9. TASIGNA [Suspect]
     Dosage: 400 MG, BID
     Route: 048
     Dates: start: 20110505, end: 20110527
  10. OMEPRAZOLE [Concomitant]
  11. ORAMORPH SR [Concomitant]
  12. LORAZEPAM [Concomitant]

REACTIONS (14)
  - DECREASED APPETITE [None]
  - ABDOMINAL PAIN [None]
  - TREATMENT NONCOMPLIANCE [None]
  - NEOPLASM MALIGNANT [None]
  - VOMITING [None]
  - PYREXIA [None]
  - BACK PAIN [None]
  - GENERAL PHYSICAL HEALTH DETERIORATION [None]
  - ASTHENIA [None]
  - WEIGHT DECREASED [None]
  - NEOPLASM PROGRESSION [None]
  - ELECTROCARDIOGRAM QT PROLONGED [None]
  - FATIGUE [None]
  - GASTROINTESTINAL STROMAL TUMOUR [None]
